FAERS Safety Report 10101241 (Version 1)
Quarter: 2014Q2

REPORT INFORMATION
  Report Type: Spontaneous
  Country: US (occurrence: None)
  Receive Date: 20140422
  Receipt Date: 20140422
  Transmission Date: 20141212
  Serious: Yes (Other)
  Sender: FDA-Public Use
  Company Number: 2014P1002710

PATIENT
  Age: 16 Year
  Sex: Male
  Weight: 96.8 kg

DRUGS (2)
  1. MYORISAN [Suspect]
     Indication: ACNE
     Route: 048
     Dates: start: 20130925
  2. MYORISAN 40 MG [Suspect]
     Indication: ACNE
     Route: 048
     Dates: start: 20130925

REACTIONS (4)
  - Mood swings [None]
  - Anger [None]
  - Abnormal behaviour [None]
  - Social avoidant behaviour [None]
